FAERS Safety Report 11319392 (Version 1)
Quarter: 2015Q3

REPORT INFORMATION
  Report Type: Spontaneous
  Country: US (occurrence: None)
  Receive Date: 20150727
  Receipt Date: 20150727
  Transmission Date: 20151125
  Serious: Yes (Disabling)
  Sender: FDA-Public Use
  Company Number: None

PATIENT
  Age: 30 Year
  Sex: Male
  Weight: 79.38 kg

DRUGS (4)
  1. MULTIVITAMIN [Concomitant]
     Active Substance: VITAMINS
  2. NALTREXOL [Concomitant]
  3. ALEVE [Concomitant]
     Active Substance: NAPROXEN SODIUM
  4. SEROQUEL XR [Suspect]
     Active Substance: QUETIAPINE FUMARATE
     Indication: PSYCHIATRIC EVALUATION
     Dosage: 2 PILLS
     Route: 048
     Dates: start: 20150616, end: 20150715

REACTIONS (4)
  - Condition aggravated [None]
  - Anxiety [None]
  - Somnolence [None]
  - Suicidal ideation [None]

NARRATIVE: CASE EVENT DATE: 20150703
